FAERS Safety Report 5224564-3 (Version None)
Quarter: 2007Q1

REPORT INFORMATION
  Report Type: 
  Country: None (occurrence: None)
  Receive Date: 20070126
  Receipt Date: 20070111
  Transmission Date: 20070707
  Serious: Yes (Other)
  Sender: FDA-Public Use
  Company Number: 2006US-04838

PATIENT
  Age: 17 Year
  Sex: Male

DRUGS (2)
  1. ISOTRETINOIN ORAL FAMILY (ISOTRETINOIN) CAPSULE [Suspect]
     Indication: ACNE
     Dosage: SEE IMAGE
     Dates: start: 20061101, end: 20061201
  2. ISOTRETINOIN ORAL FAMILY (ISOTRETINOIN) CAPSULE [Suspect]
     Indication: ACNE
     Dosage: SEE IMAGE
     Dates: start: 20061101

REACTIONS (5)
  - BLINDNESS UNILATERAL [None]
  - FATIGUE [None]
  - OPTIC NEURITIS [None]
  - PHARMACEUTICAL PRODUCT COMPLAINT [None]
  - SOMNOLENCE [None]
